FAERS Safety Report 24283701 (Version 1)
Quarter: 2024Q3

REPORT INFORMATION
  Report Type: Spontaneous
  Country: US (occurrence: US)
  Receive Date: 20240905
  Receipt Date: 20240905
  Transmission Date: 20241017
  Serious: No
  Sender: Haleon PLC
  Company Number: US-HALEON-2195033

PATIENT
  Age: 65 Year
  Sex: Female

DRUGS (2)
  1. VOLTAREN ARTHRITIS PAIN [Suspect]
     Active Substance: DICLOFENAC SODIUM
     Indication: Arthralgia
     Dosage: EXPDATE:202606 , ONCE A DAY AND THE DURATION WAS SPORATIC FOR 1-2 TIMES ?A WEEK
  2. VOLTAREN ARTHRITIS PAIN [Suspect]
     Active Substance: DICLOFENAC SODIUM
     Indication: Myalgia

REACTIONS (4)
  - Rash [Unknown]
  - Swelling [Unknown]
  - Product use in unapproved indication [Unknown]
  - Product use issue [Unknown]
